FAERS Safety Report 8560797-6 (Version None)
Quarter: 2012Q3

REPORT INFORMATION
  Report Type: 
  Country: None (occurrence: None)
  Receive Date: 20120727
  Receipt Date: 20120727
  Transmission Date: 20120928
  Serious: Yes (Hospitalization)
  Sender: FDA-Public Use
  Company Number: None

PATIENT
  Age: 83 Year
  Sex: Male
  Weight: 83.4 kg

DRUGS (9)
  1. FENTANYL [Suspect]
     Indication: PREOPERATIVE CARE
     Dosage: 50MCG ONCE IV RECENT
     Route: 042
  2. PREVACID [Concomitant]
  3. ASPIRIN [Concomitant]
  4. INDAPAMIDE [Concomitant]
  5. CARVEDILOL [Concomitant]
  6. ENALAPRIL MALEATE [Concomitant]
  7. TAMSULOSIN HCL [Concomitant]
  8. BENAZEPRIL HYDROCHLORIDE [Concomitant]
  9. DOCUSATE SODIUM [Concomitant]

REACTIONS (6)
  - SMALL INTESTINAL OBSTRUCTION [None]
  - PULSE ABSENT [None]
  - ATRIAL FIBRILLATION [None]
  - BLOOD PRESSURE DECREASED [None]
  - CARDIAC ARREST [None]
  - ACUTE RESPIRATORY FAILURE [None]
